FAERS Safety Report 15418370 (Version 1)
Quarter: 2018Q3

REPORT INFORMATION
  Report Type: Spontaneous
  Country: US (occurrence: US)
  Receive Date: 20180917
  Receipt Date: 20180917
  Transmission Date: 20181010
  Serious: No
  Sender: FDA-Public Use
  Company Number: None

PATIENT
  Age: 75 Year
  Sex: Female

DRUGS (1)
  1. INLYTA [Suspect]
     Active Substance: AXITINIB
     Route: 048
     Dates: start: 20180817

REACTIONS (6)
  - Memory impairment [None]
  - Hypertension [None]
  - Cognitive disorder [None]
  - Constipation [None]
  - Gait disturbance [None]
  - Speech disorder [None]

NARRATIVE: CASE EVENT DATE: 20180914
